FAERS Safety Report 5175695-8 (Version None)
Quarter: 2006Q4

REPORT INFORMATION
  Report Type: 
  Country: None (occurrence: None)
  Receive Date: 20061211
  Receipt Date: 20061211
  Transmission Date: 20070319
  Serious: No
  Sender: FDA-Public Use
  Company Number: None

PATIENT
  Age: 52 Year
  Sex: Male
  Weight: 82.5547 kg

DRUGS (5)
  1. HUMALOG PEN [Suspect]
     Indication: DIABETES MELLITUS INSULIN-DEPENDENT
     Dosage: 10 UNITS  SUBCUTANEOUSLY  THREE TIMES DAILY
     Route: 058
     Dates: start: 20060801
  2. LISINOPRIL [Concomitant]
  3. ZETIA [Concomitant]
  4. LANTUS [Concomitant]
  5. DOXYCYCLINE HYCLATE [Concomitant]

REACTIONS (3)
  - DEVICE MALFUNCTION [None]
  - INCORRECT DOSE ADMINISTERED [None]
  - PHARMACEUTICAL PRODUCT COMPLAINT [None]
